FAERS Safety Report 4317908-8 (Version None)
Quarter: 2004Q1

REPORT INFORMATION
  Report Type: 
  Country: None (occurrence: None)
  Receive Date: 20040316
  Receipt Date: 20040217
  Transmission Date: 20041129
  Serious: Yes (Other)
  Sender: FDA-Public Use
  Company Number: US-ROCHE-359247

PATIENT
  Age: 15 Year
  Sex: Male
  Weight: 65.8 kg

DRUGS (6)
  1. ACCUTANE [Suspect]
     Indication: ACNE
     Route: 048
     Dates: start: 20040115
  2. ACCUTANE [Suspect]
     Dosage: DOSAGE REGIMEN REPORTED AS: 40MG EVERYOTHER DAY, ALTERNATED WITH 40MG BID.
     Route: 048
  3. ACCUTANE [Suspect]
     Route: 048
     Dates: end: 20040219
  4. ISOTRETINOIN [Suspect]
     Indication: ACNE
     Route: 048
     Dates: end: 20040102
  5. ISOTRETINOIN [Suspect]
     Dosage: DOSAGE REGIMEN REPORTED AS: 40MG EVERYOTHER DAY, ALTERNATED WITH 40MG BID.
     Route: 048
  6. ISOTRETINOIN [Suspect]
     Route: 048
     Dates: start: 20030915

REACTIONS (2)
  - HAEMORRHAGE [None]
  - PYOGENIC GRANULOMA [None]
